FAERS Safety Report 17666396 (Version 1)
Quarter: 2020Q2

REPORT INFORMATION
  Report Type: Spontaneous
  Country: US (occurrence: US)
  Receive Date: 20200414
  Receipt Date: 20200414
  Transmission Date: 20200713
  Serious: No
  Sender: FDA-Public Use
  Company Number: None

PATIENT
  Age: 68 Year
  Sex: Female
  Weight: 101.88 kg

DRUGS (5)
  1. XGEVA 120MG/1.7ML, SQ [Concomitant]
  2. VERZENIO [Suspect]
     Active Substance: ABEMACICLIB
     Indication: BREAST CANCER
     Route: 048
     Dates: start: 20190115, end: 20200414
  3. OS CAL ULTRA, 600MG, ORAL [Concomitant]
  4. VITAMIN D 400, 400U ORAL [Concomitant]
  5. FASLODEX 250MG,5ML, IM [Concomitant]

REACTIONS (1)
  - Disease progression [None]

NARRATIVE: CASE EVENT DATE: 20200414
